FAERS Safety Report 24433788 (Version 1)
Quarter: 2024Q4

REPORT INFORMATION
  Report Type: Spontaneous
  Country: US (occurrence: US)
  Receive Date: 20241014
  Receipt Date: 20241014
  Transmission Date: 20250114
  Serious: No
  Sender: SPROUT PHARMACEUTICALS, INC.
  Company Number: US-Sprout Pharmaceuticals, Inc.-2023SP000362

PATIENT
  Age: 53 Year
  Sex: Female

DRUGS (1)
  1. ADDYI [Suspect]
     Active Substance: FLIBANSERIN
     Indication: Product used for unknown indication
     Dosage: RX # 8754800
     Route: 048
     Dates: start: 20231001, end: 202311

REACTIONS (3)
  - Adverse reaction [Unknown]
  - Irritability [Unknown]
  - Weight decreased [Unknown]

NARRATIVE: CASE EVENT DATE: 20231015
